FAERS Safety Report 6164738-0 (Version None)
Quarter: 2009Q2

REPORT INFORMATION
  Report Type: 
  Country: None (occurrence: None)
  Receive Date: 20090423
  Receipt Date: 20090414
  Transmission Date: 20091009
  Serious: Yes (Other)
  Sender: FDA-Public Use
  Company Number: US-BIOGENIDEC-2005BI008025

PATIENT
  Age: 48 Year
  Sex: Female
  Weight: 127 kg

DRUGS (2)
  1. AVONEX [Suspect]
     Indication: MULTIPLE SCLEROSIS
     Route: 030
     Dates: start: 20010213, end: 20031105
  2. AVONEX [Suspect]
     Route: 030
     Dates: start: 20050412

REACTIONS (2)
  - LUNG NEOPLASM MALIGNANT [None]
  - MOBILITY DECREASED [None]
